FAERS Safety Report 8552797-7 (Version None)
Quarter: 2012Q3

REPORT INFORMATION
  Report Type: 
  Country: None (occurrence: None)
  Receive Date: 20120731
  Receipt Date: 20120729
  Transmission Date: 20120928
  Serious: No
  Sender: FDA-Public Use
  Company Number: US-PFIZER INC-2012176277

PATIENT
  Sex: Female
  Weight: 56.689 kg

DRUGS (15)
  1. PRILOSEC [Concomitant]
     Dosage: UNK, DAILY
  2. LUTEIN [Concomitant]
     Dosage: UNK
  3. CALCIUM [Concomitant]
     Dosage: UNK
  4. SINGULAIR [Concomitant]
     Indication: HYPERSENSITIVITY
  5. SINGULAIR [Concomitant]
     Indication: ASTHMA
     Dosage: UNK, DAILY
  6. ACETYLSALICYLIC ACID [Concomitant]
     Dosage: 81 MG, UNK
  7. VITAMIN B-12 [Concomitant]
     Dosage: UNK
  8. LYRICA [Suspect]
     Indication: OSTEOARTHRITIS
     Dosage: 50 MG, DAILY
     Route: 048
     Dates: start: 20120718
  9. SYNTHROID [Concomitant]
     Indication: THYROID DISORDER
     Dosage: 75 MCG, DAILY
     Route: 048
  10. VITAMIN TAB [Concomitant]
     Dosage: UNK
  11. BIOTIN [Concomitant]
     Dosage: UNK
  12. LYRICA [Suspect]
     Indication: FIBROMYALGIA
     Dosage: 50 MG, 2X/DAY
     Dates: start: 20120701
  13. NIASPAN [Concomitant]
     Indication: BLOOD CHOLESTEROL ABNORMAL
     Dosage: 1000 MG, DAILY
  14. ACTONEL [Concomitant]
     Indication: BONE DEVELOPMENT ABNORMAL
     Dosage: UNK, MONTHLY
     Route: 048
  15. NAPROXEN (ALEVE) [Concomitant]
     Dosage: UNK

REACTIONS (3)
  - DRY MOUTH [None]
  - OEDEMA PERIPHERAL [None]
  - OFF LABEL USE [None]
